FAERS Safety Report 6108318-1 (Version None)
Quarter: 2009Q1

REPORT INFORMATION
  Report Type: 
  Country: None (occurrence: None)
  Receive Date: 20090309
  Receipt Date: 20090224
  Transmission Date: 20090719
  Serious: Yes (Death, Hospitalization)
  Sender: FDA-Public Use
  Company Number: IT-ROCHE-595026

PATIENT
  Sex: Male

DRUGS (10)
  1. MYCOPHENOLATE MOFETIL [Suspect]
     Indication: LIVER TRANSPLANT
     Route: 048
     Dates: start: 20081005, end: 20081023
  2. BELATACEPT [Suspect]
     Indication: LIVER TRANSPLANT
     Route: 042
     Dates: start: 20081005, end: 20081020
  3. BLINDED BASILIXIMAB [Suspect]
     Indication: LIVER TRANSPLANT
     Route: 042
     Dates: start: 20081005, end: 20081009
  4. MERREM [Concomitant]
     Dates: start: 20081005, end: 20081012
  5. SPORANOX [Concomitant]
     Dates: start: 20081013, end: 20081023
  6. DIFLUCAN [Concomitant]
     Dates: start: 20081013, end: 20081023
  7. MYCOSTATIN [Concomitant]
     Dates: start: 20081009, end: 20081023
  8. CANCIDAS [Concomitant]
     Dates: start: 20081023
  9. FLUCONAZOLE [Concomitant]
     Dates: start: 20081023
  10. AMBISOME [Concomitant]
     Dosage: DRUG REPORTED AS AMBISONE
     Dates: start: 20081023

REACTIONS (4)
  - MULTI-ORGAN FAILURE [None]
  - SEPSIS [None]
  - SYSTEMIC MYCOSIS [None]
  - VASCULAR PSEUDOANEURYSM RUPTURED [None]
